FAERS Safety Report 25614173 (Version 3)
Quarter: 2025Q4

REPORT INFORMATION
  Report Type: Spontaneous
  Country: US (occurrence: US)
  Receive Date: 20250728
  Receipt Date: 20251027
  Transmission Date: 20260117
  Serious: No
  Sender: BLUEPRINT MEDICINES
  Company Number: US-Blueprint Medicines Corporation-2025-AER-01650

PATIENT
  Age: 51 Year
  Sex: Female

DRUGS (14)
  1. AYVAKIT [Suspect]
     Active Substance: AVAPRITINIB
     Indication: Indolent systemic mastocytosis
     Route: 048
     Dates: start: 20230803
  2. AYVAKIT [Suspect]
     Active Substance: AVAPRITINIB
     Route: 065
     Dates: start: 20230803
  3. CROMOLYN SODIUM [Concomitant]
     Active Substance: CROMOLYN SODIUM
     Indication: Product used for unknown indication
     Route: 065
  4. COENZYME Q10 [Concomitant]
     Active Substance: DIETARY SUPPLEMENT\UBIDECARENONE
     Indication: Product used for unknown indication
     Route: 065
  5. LOSARTAN POTASSIUM [Concomitant]
     Active Substance: LOSARTAN POTASSIUM
     Indication: Product used for unknown indication
     Route: 065
  6. PROGESTERONE [Concomitant]
     Active Substance: PROGESTERONE
     Indication: Product used for unknown indication
     Route: 065
  7. Womens Multivitamin [Concomitant]
     Indication: Product used for unknown indication
     Route: 065
  8. LORATADINE [Concomitant]
     Active Substance: LORATADINE
     Indication: Product used for unknown indication
     Route: 065
  9. ACCRUFER [Concomitant]
     Active Substance: FERRIC MALTOL
     Indication: Product used for unknown indication
     Route: 065
  10. HYDROXYZINE [Concomitant]
     Active Substance: HYDROXYZINE HYDROCHLORIDE
     Indication: Product used for unknown indication
     Route: 065
  11. OMEGA-3 ACIDS [Concomitant]
     Active Substance: OMEGA-3 FATTY ACIDS
     Indication: Product used for unknown indication
     Route: 065
  12. VITAMIN D3 [Concomitant]
     Active Substance: CHOLECALCIFEROL
     Indication: Product used for unknown indication
     Route: 065
  13. NORETHINDRONE [Concomitant]
     Active Substance: NORETHINDRONE
     Indication: Product used for unknown indication
     Route: 065
  14. PEPCID [Concomitant]
     Active Substance: FAMOTIDINE
     Indication: Product used for unknown indication
     Route: 065

REACTIONS (5)
  - Urinary tract infection [Recovered/Resolved]
  - Rash macular [Not Recovered/Not Resolved]
  - Pruritus [Not Recovered/Not Resolved]
  - Menopause [Not Recovered/Not Resolved]
  - Off label use [Unknown]
